FAERS Safety Report 19879723 (Version 1)
Quarter: 2021Q3

REPORT INFORMATION
  Report Type: Spontaneous
  Country: CA (occurrence: CA)
  Receive Date: 20210924
  Receipt Date: 20210924
  Transmission Date: 20211014
  Serious: Yes (Hospitalization)
  Sender: FDA-Public Use
  Company Number: CA-PFIZER INC-2021077897

PATIENT
  Age: 73 Year
  Sex: Female

DRUGS (1)
  1. RUXIENCE [Suspect]
     Active Substance: RITUXIMAB-PVVR
     Indication: RHEUMATOID ARTHRITIS
     Dosage: 1000 MG EVERY 6 MONTHS
     Route: 042
     Dates: start: 20210222

REACTIONS (3)
  - Off label use [Unknown]
  - COVID-19 [Unknown]
  - Intentional product use issue [Unknown]
